FAERS Safety Report 4644898-0 (Version None)
Quarter: 2005Q2

REPORT INFORMATION
  Report Type: 
  Country: None (occurrence: None)
  Receive Date: 20050422
  Receipt Date: 20050407
  Transmission Date: 20051028
  Serious: Yes (Other)
  Sender: FDA-Public Use
  Company Number: ST-2005-008337

PATIENT
  Sex: Male

DRUGS (8)
  1. OLMETEC [Suspect]
     Indication: HYPERTENSION
     Dosage: 10 MG PO
     Route: 048
  2. OLMETEC [Suspect]
     Indication: HYPERTENSION
     Dosage: 20 MG PO
     Route: 048
  3. HUSCODE [Suspect]
  4. PL GRAN [Concomitant]
  5. DASEN [Concomitant]
  6. FLOMOX [Concomitant]
  7. NORVASC [Concomitant]
  8. TORSEMIDE [Concomitant]

REACTIONS (2)
  - BLOOD PRESSURE DECREASED [None]
  - DIZZINESS [None]
